FAERS Safety Report 8532597-4 (Version None)
Quarter: 2012Q3

REPORT INFORMATION
  Report Type: 
  Country: None (occurrence: None)
  Receive Date: 20120724
  Receipt Date: 20120720
  Transmission Date: 20120928
  Serious: No
  Sender: FDA-Public Use
  Company Number: US-PFIZER INC-2012147717

PATIENT
  Sex: Female
  Weight: 77.098 kg

DRUGS (2)
  1. PRISTIQ [Suspect]
     Indication: ANXIETY
     Dosage: 50 MG, 1X/DAY
     Route: 048
  2. PRISTIQ [Suspect]
     Indication: DEPRESSION

REACTIONS (3)
  - MIGRAINE [None]
  - DRUG INEFFECTIVE [None]
  - DRUG TOLERANCE [None]
